FAERS Safety Report 8541346-5 (Version None)
Quarter: 2012Q3

REPORT INFORMATION
  Report Type: 
  Country: None (occurrence: None)
  Receive Date: 20120726
  Receipt Date: 20120720
  Transmission Date: 20120928
  Serious: Yes (Other)
  Sender: FDA-Public Use
  Company Number: US-BAYER-2012-073467

PATIENT
  Age: 87 Year
  Sex: Male
  Weight: 73 kg

DRUGS (5)
  1. ISOSORBIDE [Concomitant]
  2. ASPIRIN [Suspect]
     Indication: PAIN
     Dosage: 2 DF, PRN
     Route: 048
  3. LOSARTAN POTASSIUM [Concomitant]
  4. FELODIPINE [Concomitant]
  5. ASPIRIN [Concomitant]

REACTIONS (1)
  - CHEMICAL BURN OF GASTROINTESTINAL TRACT [None]
